FAERS Safety Report 6869186-3 (Version None)
Quarter: 2010Q3

REPORT INFORMATION
  Report Type: 
  Country: None (occurrence: None)
  Receive Date: 20100722
  Receipt Date: 20080916
  Transmission Date: 20110219
  Serious: No
  Sender: FDA-Public Use
  Company Number: US-PFIZER INC-2008057346

PATIENT
  Sex: Female
  Weight: 79.38 kg

DRUGS (7)
  1. CHANTIX [Suspect]
     Indication: SMOKING CESSATION THERAPY
     Route: 048
     Dates: start: 20080705, end: 20080719
  2. COPAXONE [Interacting]
     Indication: MULTIPLE SCLEROSIS
  3. LOMOTIL [Concomitant]
  4. PETIBELLE FILMTABLETTEN [Concomitant]
  5. XANAX [Concomitant]
  6. METHYLPREDNISOLONE SODIUM SUCCINATE [Concomitant]
     Route: 042
  7. PETIBELLE FILMTABLETTEN [Concomitant]

REACTIONS (9)
  - CHEST PAIN [None]
  - DRUG INTERACTION [None]
  - DYSPNOEA [None]
  - IRRITABILITY [None]
  - NAUSEA [None]
  - NERVOUSNESS [None]
  - PAIN IN EXTREMITY [None]
  - PANIC REACTION [None]
  - STRESS [None]
